FAERS Safety Report 20516523 (Version 1)
Quarter: 2022Q1

REPORT INFORMATION
  Report Type: Report from Study
  Country: US (occurrence: US)
  Receive Date: 20220225
  Receipt Date: 20220225
  Transmission Date: 20220423
  Serious: Yes (Other)
  Sender: FDA-Public Use
  Company Number: US-ABBVIE-22K-163-4290992-00

PATIENT
  Age: 50 Year
  Sex: Male

DRUGS (2)
  1. DUOPA [Suspect]
     Active Substance: CARBIDOPA\LEVODOPA
     Indication: Parkinson^s disease
     Dosage: (100ML X7)?4.63-20M6?1 CASSETTE AS NEEDED
     Route: 050
     Dates: start: 202106
  2. DUOPA [Suspect]
     Active Substance: CARBIDOPA\LEVODOPA

REACTIONS (2)
  - Surgery [Unknown]
  - Device issue [Unknown]

NARRATIVE: CASE EVENT DATE: 20220219
